FAERS Safety Report 6038296-5 (Version None)
Quarter: 2009Q1

REPORT INFORMATION
  Report Type: 
  Country: None (occurrence: None)
  Receive Date: 20090113
  Receipt Date: 20080118
  Transmission Date: 20090719
  Serious: Yes (Other)
  Sender: FDA-Public Use
  Company Number: 08-000116

PATIENT
  Age: 35 Year
  Sex: Female
  Weight: 84.4 kg

DRUGS (1)
  1. FEMCON FE [Suspect]
     Indication: MENORRHAGIA
     Dosage: 0.4MG/35MCG, QD, ORAL
     Route: 048
     Dates: start: 20071101, end: 20080101

REACTIONS (1)
  - METRORRHAGIA [None]
